FAERS Safety Report 4642426-7 (Version None)
Quarter: 2005Q2

REPORT INFORMATION
  Report Type: 
  Country: None (occurrence: None)
  Receive Date: 20050420
  Receipt Date: 20050420
  Transmission Date: 20051028
  Serious: No
  Sender: FDA-Public Use
  Company Number: None

PATIENT
  Sex: Male
  Weight: 11 kg

DRUGS (5)
  1. VINCRISTINE [Suspect]
     Dosage: 0.26MG
     Dates: start: 20041117
  2. CYTOXAN [Suspect]
     Dosage: 1134MG
  3. DOXACILLIN [Suspect]
     Dosage: 19MG X 3
  4. CISPLATIN [Suspect]
     Dosage: 20MG X 5 DOSES EACH CYCLE
  5. ETOPOSIDE [Suspect]
     Dosage: 80MG  X  3 DAYS

REACTIONS (8)
  - ANAEMIA [None]
  - HAEMORRHAGE INTRACRANIAL [None]
  - METASTASES TO CENTRAL NERVOUS SYSTEM [None]
  - METASTASES TO DIAPHRAGM [None]
  - METASTASES TO LUNG [None]
  - METASTASES TO PLEURA [None]
  - PNEUMONIA [None]
  - PROCEDURAL COMPLICATION [None]
